FAERS Safety Report 17764897 (Version 1)
Quarter: 2020Q2

REPORT INFORMATION
  Report Type: Report from Study
  Country: CN (occurrence: CN)
  Receive Date: 20200511
  Receipt Date: 20200511
  Transmission Date: 20200714
  Serious: Yes (Hospitalization)
  Sender: FDA-Public Use
  Company Number: CN-ROCHE-2526232

PATIENT
  Age: 75 Year
  Sex: Female
  Weight: 69 kg

DRUGS (71)
  1. PLACEBO [Suspect]
     Active Substance: UNSPECIFIED INGREDIENT
     Indication: NEOPLASM MALIGNANT
     Dosage: DATE OF MOST RECENT DOSE OF PLACEBO PRIOR TO ADVERSE EVENT ONSET: 04/FEB/2020
     Route: 042
     Dates: start: 20181120
  2. AMIFOSTINE. [Concomitant]
     Active Substance: AMIFOSTINE
     Route: 065
     Dates: start: 20190306, end: 20190306
  3. AMIFOSTINE. [Concomitant]
     Active Substance: AMIFOSTINE
     Route: 065
     Dates: start: 20191113, end: 20191113
  4. LANSOPRAZOLE. [Concomitant]
     Active Substance: LANSOPRAZOLE
     Route: 042
     Dates: start: 20191204, end: 20191204
  5. LEVOTHYROXINE SODIUM. [Concomitant]
     Active Substance: LEVOTHYROXINE SODIUM
     Indication: HYPOTHYROIDISM
     Route: 048
     Dates: start: 20191001
  6. SODIUM LACTATE. [Concomitant]
     Active Substance: SODIUM LACTATE
     Indication: INFUSION
     Route: 065
     Dates: start: 20190620, end: 20190620
  7. PALONOSETRON HYDROCHLORIDE. [Concomitant]
     Active Substance: PALONOSETRON HYDROCHLORIDE
     Indication: PROPHYLAXIS
     Route: 065
     Dates: start: 20191002, end: 20191002
  8. PACLITAXEL. [Suspect]
     Active Substance: PACLITAXEL
     Indication: NEOPLASM MALIGNANT
     Dosage: DOSE OF LAST PACLITAXEL ADMINISTERED PRIOR TO AE ONSET 300 MG?DATE OF MOST RECENT DOSE OF PACLITAXEL
     Route: 042
     Dates: start: 20181120
  9. BERBERINE HYDROCHLORIDE [Concomitant]
     Active Substance: BERBERINE
     Indication: HYPOTHYROIDISM
     Route: 065
     Dates: start: 20190803, end: 20200205
  10. LANSOPRAZOLE. [Concomitant]
     Active Substance: LANSOPRAZOLE
     Indication: GASTROINTESTINAL INJURY
     Route: 042
     Dates: start: 20191225, end: 20191225
  11. LANSOPRAZOLE. [Concomitant]
     Active Substance: LANSOPRAZOLE
     Route: 065
     Dates: start: 20190213, end: 20190213
  12. LANSOPRAZOLE. [Concomitant]
     Active Substance: LANSOPRAZOLE
     Route: 065
     Dates: start: 20190418, end: 20190418
  13. LANSOPRAZOLE. [Concomitant]
     Active Substance: LANSOPRAZOLE
     Route: 065
     Dates: start: 20190911, end: 20190911
  14. ZINACEF [CEFUROXIME] [Concomitant]
     Indication: UPPER RESPIRATORY TRACT INFECTION
     Route: 065
     Dates: start: 20190118, end: 20190127
  15. LACTULOSE. [Concomitant]
     Active Substance: LACTULOSE
     Indication: CONSTIPATION
     Route: 065
     Dates: start: 20190123, end: 20190123
  16. GINKGO BILOBA LEAF [Concomitant]
     Active Substance: GINKGO
     Route: 065
     Dates: start: 2008
  17. LEUCOGEN [Concomitant]
     Active Substance: LEUCOGEN
     Route: 065
     Dates: start: 20190510
  18. LANSOPRAZOLE. [Concomitant]
     Active Substance: LANSOPRAZOLE
     Route: 065
     Dates: start: 20190822, end: 20190822
  19. POTASSIUM CHLORIDE. [Concomitant]
     Active Substance: POTASSIUM CHLORIDE
     Route: 042
     Dates: start: 20191225, end: 20191225
  20. GLUTATHIONE REDUCED [Concomitant]
     Indication: LIVER INJURY
     Route: 065
     Dates: start: 20190327, end: 20190327
  21. VITAMIN D3 [Concomitant]
     Active Substance: CHOLECALCIFEROL
     Indication: MINERAL SUPPLEMENTATION
     Route: 065
     Dates: start: 20190329
  22. SODIUM CHLORIDE. [Concomitant]
     Active Substance: SODIUM CHLORIDE
     Route: 065
     Dates: start: 20191023, end: 20191023
  23. AZASETRON HYDROCHLORIDE;SODIUM CHLORIDE [Concomitant]
     Route: 065
     Dates: start: 20190123, end: 20190123
  24. POTASSIUM CHLORIDE. [Concomitant]
     Active Substance: POTASSIUM CHLORIDE
     Indication: BLOOD POTASSIUM DECREASED
     Route: 065
     Dates: start: 20191002, end: 20191002
  25. POTASSIUM CHLORIDE. [Concomitant]
     Active Substance: POTASSIUM CHLORIDE
     Route: 065
     Dates: start: 20191023, end: 20191023
  26. POTASSIUM CHLORIDE. [Concomitant]
     Active Substance: POTASSIUM CHLORIDE
     Route: 042
     Dates: start: 20200204, end: 20200204
  27. ENEMAC [Concomitant]
     Route: 065
     Dates: start: 20190802, end: 20190802
  28. HEPARIN SODIUM. [Concomitant]
     Active Substance: HEPARIN SODIUM
     Route: 065
     Dates: start: 20190822, end: 20190822
  29. LEUCOGEN [Concomitant]
     Active Substance: LEUCOGEN
     Route: 065
     Dates: start: 20190329, end: 20190418
  30. BERBERINE HYDROCHLORIDE [Concomitant]
     Active Substance: BERBERINE
     Indication: DIARRHOEA
     Route: 065
     Dates: start: 20190731, end: 20190731
  31. OMEPRAZOLE SODIUM [Concomitant]
     Active Substance: OMEPRAZOLE SODIUM
     Indication: GASTROINTESTINAL INJURY
     Route: 042
     Dates: start: 20200115, end: 20200115
  32. OMEPRAZOLE SODIUM [Concomitant]
     Active Substance: OMEPRAZOLE SODIUM
     Route: 042
     Dates: start: 20200204, end: 20200204
  33. LANSOPRAZOLE. [Concomitant]
     Active Substance: LANSOPRAZOLE
     Route: 065
     Dates: start: 20190102, end: 20190102
  34. LANSOPRAZOLE. [Concomitant]
     Active Substance: LANSOPRAZOLE
     Route: 065
     Dates: start: 20191002, end: 20191002
  35. LANSOPRAZOLE. [Concomitant]
     Active Substance: LANSOPRAZOLE
     Route: 065
     Dates: start: 20191023, end: 20191023
  36. LANSOPRAZOLE. [Concomitant]
     Active Substance: LANSOPRAZOLE
     Route: 042
     Dates: start: 20191113, end: 20191113
  37. POTASSIUM CHLORIDE. [Concomitant]
     Active Substance: POTASSIUM CHLORIDE
     Route: 065
     Dates: start: 20191204, end: 20191204
  38. POTASSIUM CHLORIDE. [Concomitant]
     Active Substance: POTASSIUM CHLORIDE
     Route: 042
     Dates: start: 20200115, end: 20200115
  39. GLUTATHIONE REDUCED [Concomitant]
     Route: 042
     Dates: start: 20191113, end: 20191113
  40. GLUTATHIONE REDUCED [Concomitant]
     Route: 042
     Dates: start: 20200115, end: 20200115
  41. ENEMAC [Concomitant]
     Indication: CONSTIPATION
     Route: 065
     Dates: start: 20181231, end: 20190103
  42. ENEMAC [Concomitant]
     Route: 065
     Dates: start: 20190307, end: 20190307
  43. PREDNISONE ACETATE [Concomitant]
     Active Substance: PREDNISONE ACETATE
     Route: 048
     Dates: start: 20200303
  44. REDUCED GLUTATHIONE SODIUM [Concomitant]
     Active Substance: GLUTATHIONE
     Route: 065
     Dates: start: 20191225, end: 20191225
  45. REDUCED GLUTATHIONE SODIUM [Concomitant]
     Active Substance: GLUTATHIONE
     Route: 065
     Dates: start: 20190911, end: 20190911
  46. LANSOPRAZOLE. [Concomitant]
     Active Substance: LANSOPRAZOLE
     Route: 065
     Dates: start: 20190123, end: 20190123
  47. LANSOPRAZOLE. [Concomitant]
     Active Substance: LANSOPRAZOLE
     Route: 065
     Dates: start: 20190620, end: 20190620
  48. DEXAMETHASONE ACETATE [Concomitant]
     Active Substance: DEXAMETHASONE ACETATE
     Route: 048
     Dates: start: 20190213, end: 20190213
  49. CALCIUM CARBONATE. [Concomitant]
     Active Substance: CALCIUM CARBONATE
     Indication: MINERAL SUPPLEMENTATION
     Route: 065
     Dates: start: 20190329
  50. CARBOPLATIN. [Suspect]
     Active Substance: CARBOPLATIN
     Indication: NEOPLASM MALIGNANT
     Dosage: DOSE OF  CARBOPLATIN AT A DOSE TO ACHIEVE A TARGET AREA UNDER THE CURVE (AUC) OF 6 MILLIGRAMS PER MI
     Route: 042
     Dates: start: 20181120
  51. REDUCED GLUTATHIONE SODIUM [Concomitant]
     Active Substance: GLUTATHIONE
     Indication: LIVER INJURY
     Route: 042
     Dates: start: 20200115, end: 20200115
  52. LANSOPRAZOLE. [Concomitant]
     Active Substance: LANSOPRAZOLE
     Route: 065
     Dates: start: 20190327, end: 20190327
  53. AZASETRON HYDROCHLORIDE;SODIUM CHLORIDE [Concomitant]
     Indication: PROPHYLAXIS
     Route: 065
     Dates: start: 20190102, end: 20190102
  54. AZASETRON HYDROCHLORIDE;SODIUM CHLORIDE [Concomitant]
     Route: 065
     Dates: start: 20190306, end: 20190306
  55. GLUTATHIONE REDUCED [Concomitant]
     Indication: PROPHYLAXIS
     Route: 065
     Dates: start: 20190123, end: 20190123
  56. GLUTATHIONE REDUCED [Concomitant]
     Route: 042
     Dates: start: 20200204, end: 20200204
  57. CALCIUM GLUCONATE. [Concomitant]
     Active Substance: CALCIUM GLUCONATE
     Indication: PROPHYLAXIS
     Route: 065
     Dates: start: 20190620, end: 20190620
  58. PALONOSETRON HYDROCHLORIDE. [Concomitant]
     Active Substance: PALONOSETRON HYDROCHLORIDE
     Route: 065
     Dates: start: 20191023, end: 20191023
  59. SODIUM CHLORIDE. [Concomitant]
     Active Substance: SODIUM CHLORIDE
     Route: 065
     Dates: start: 20191002, end: 20191002
  60. BEVACIZUMAB. [Suspect]
     Active Substance: BEVACIZUMAB
     Indication: NEOPLASM MALIGNANT
     Dosage: DATE OF MOST RECENT DOSE OF BEVACIZUMAB WAS 990MG PRIOR TO AE ONSET: 04/FEB/2020
     Route: 042
     Dates: start: 20181211
  61. AMIFOSTINE. [Concomitant]
     Active Substance: AMIFOSTINE
     Route: 065
     Dates: start: 20190102, end: 20190102
  62. LEUCOGEN [Concomitant]
     Active Substance: LEUCOGEN
     Indication: THROMBOCYTOPENIA
     Route: 048
     Dates: start: 20190315, end: 20190325
  63. REDUCED GLUTATHIONE SODIUM [Concomitant]
     Active Substance: GLUTATHIONE
     Route: 065
     Dates: start: 20190822, end: 20190822
  64. LANSOPRAZOLE. [Concomitant]
     Active Substance: LANSOPRAZOLE
     Route: 065
     Dates: start: 20190801, end: 20190801
  65. EUTHYROX [Concomitant]
     Active Substance: LEVOTHYROXINE SODIUM
     Route: 065
     Dates: start: 20190101, end: 20190113
  66. DEXAMETHASONE ACETATE [Concomitant]
     Active Substance: DEXAMETHASONE ACETATE
     Indication: PROPHYLAXIS
     Route: 048
     Dates: start: 20190101, end: 20190102
  67. POTASSIUM CHLORIDE. [Concomitant]
     Active Substance: POTASSIUM CHLORIDE
     Indication: PROPHYLAXIS
     Route: 065
     Dates: start: 20190102, end: 20190102
  68. POTASSIUM CHLORIDE. [Concomitant]
     Active Substance: POTASSIUM CHLORIDE
     Route: 065
     Dates: start: 20191113, end: 20191113
  69. GLUTATHIONE REDUCED [Concomitant]
     Route: 065
     Dates: start: 20190530, end: 20190530
  70. GLUTATHIONE REDUCED [Concomitant]
     Route: 042
     Dates: start: 20191204, end: 20191204
  71. GLUTATHIONE REDUCED [Concomitant]
     Route: 065
     Dates: start: 20191225, end: 20191225

REACTIONS (2)
  - Hypothyroidism [Not Recovered/Not Resolved]
  - Immune-mediated nephritis [Not Recovered/Not Resolved]

NARRATIVE: CASE EVENT DATE: 20190121
